FAERS Safety Report 8492106-5 (Version None)
Quarter: 2012Q3

REPORT INFORMATION
  Report Type: 
  Country: None (occurrence: None)
  Receive Date: 20120706
  Receipt Date: 20120703
  Transmission Date: 20120928
  Serious: Yes (Death, Other)
  Sender: FDA-Public Use
  Company Number: US-PFIZER INC-2012115344

PATIENT
  Sex: Female

DRUGS (2)
  1. GEODON [Suspect]
     Dosage: UNK
  2. GLUCOTROL [Suspect]
     Dosage: UNK

REACTIONS (3)
  - DEATH [None]
  - BIPOLAR I DISORDER [None]
  - DRUG INEFFECTIVE [None]
